FAERS Safety Report 6479768-9 (Version None)
Quarter: 2009Q4

REPORT INFORMATION
  Report Type: 
  Country: None (occurrence: None)
  Receive Date: 20091208
  Receipt Date: 20091126
  Transmission Date: 20100525
  Serious: Yes (Hospitalization, Other)
  Sender: FDA-Public Use
  Company Number: PHHY2009FR10216

PATIENT
  Sex: Female

DRUGS (24)
  1. STALEVO 100 [Suspect]
     Indication: PARKINSON'S DISEASE
     Dosage: 400MG DAILY
  2. STALEVO 100 [Suspect]
     Dosage: 600MG DAILY
     Dates: start: 20050909
  3. COMTAN [Suspect]
     Indication: PARKINSON'S DISEASE
     Dosage: 800MG DAILY
     Dates: start: 20050113
  4. REQUIP [Suspect]
     Indication: PARKINSON'S DISEASE
     Dosage: UNK
     Dates: start: 20001201, end: 20010207
  5. REQUIP [Suspect]
     Dosage: 15MG DAILY
     Dates: start: 20020101
  6. PERGOLIDE MESYLATE [Suspect]
     Indication: PARKINSON'S DISEASE
     Dosage: 0.5 MG, BID
     Dates: start: 20010101
  7. SELEGILINE HCL [Suspect]
     Indication: PARKINSON'S DISEASE
     Dosage: 5 MG, BID
     Dates: start: 20000720, end: 20080201
  8. SINEMET [Suspect]
     Indication: PARKINSON'S DISEASE
     Dosage: 50 MG, TID
     Dates: start: 20020808
  9. SINEMET [Suspect]
     Dosage: 300MG DAILY
  10. SINEMET [Suspect]
     Dosage: 600/60 MG DAILY
     Dates: start: 20040601
  11. SINEMET [Suspect]
     Dosage: 400/40 MG DAILY
     Dates: start: 20050113
  12. SINEMET [Suspect]
     Dosage: 600 MG DAILY
  13. SIFROL [Suspect]
     Indication: PARKINSON'S DISEASE
     Dosage: 0.7 UNK, TID
     Dates: end: 20080501
  14. TASMAR [Suspect]
     Indication: PARKINSON'S DISEASE
     Dosage: 100 MG, TID
     Dates: start: 20060601
  15. BENZODIAZEPINES [Suspect]
     Indication: SUICIDE ATTEMPT
  16. ANALGESICS [Suspect]
  17. EFFEXOR [Concomitant]
     Indication: EMOTIONAL DISORDER
     Dosage: 75MG DAILY
     Dates: start: 20020101
  18. EFFEXOR [Concomitant]
     Dosage: UNK
     Dates: start: 20030501, end: 20031101
  19. DOMPERIDONE [Concomitant]
     Dosage: 10 MG, TID
     Dates: start: 20040624
  20. DAFALGAN [Concomitant]
     Dosage: 1 G, TID
     Dates: start: 20040624
  21. TILCOTIL [Concomitant]
     Dosage: 20MG DAILY
     Dates: start: 20050401
  22. DICETEL [Concomitant]
     Dosage: 100 MG, BID
     Dates: start: 20050401
  23. HEXAQUINE [Concomitant]
  24. LEPONEX [Concomitant]
     Dosage: UNK
     Dates: start: 20080201

REACTIONS (7)
  - INTENTIONAL OVERDOSE [None]
  - MOVEMENT DISORDER [None]
  - MUSCLE CONTRACTURE [None]
  - PAIN [None]
  - PARKINSON'S DISEASE [None]
  - PATHOLOGICAL GAMBLING [None]
  - SPEECH DISORDER [None]
